FAERS Safety Report 4882975-X (Version None)
Quarter: 2006Q1

REPORT INFORMATION
  Report Type: 
  Country: None (occurrence: None)
  Receive Date: 20060113
  Receipt Date: 20051226
  Transmission Date: 20060701
  Serious: Yes (Hospitalization)
  Sender: FDA-Public Use
  Company Number: 221002

PATIENT
  Age: 56 Year
  Sex: Female

DRUGS (8)
  1. HERCEPTIN [Suspect]
     Indication: BREAST CANCER
     Dosage: 4 + 2 MG/KG, SINGLES, INTRAVENOUS - SEE IMAGE
     Route: 042
     Dates: start: 20051027
  2. HERCEPTIN [Suspect]
     Indication: BREAST CANCER
     Dosage: 4 + 2 MG/KG, SINGLES, INTRAVENOUS - SEE IMAGE
     Route: 042
     Dates: start: 20051125
  3. VINORELBINE TARTRATE [Suspect]
     Indication: BREAST CANCER
     Dosage: 60 + 80 MG/M2, DAY1+8/Q3W,ORAL
     Route: 048
     Dates: start: 20051027
  4. VINORELBINE TARTRATE [Suspect]
     Indication: BREAST CANCER
     Dosage: 60 + 80 MG/M2, DAY1+8/Q3W,ORAL
     Route: 048
     Dates: start: 20051118
  5. CAPECITABINE (CAPECITABINE) [Suspect]
     Indication: BREAST CANCER
     Dosage: 1000 MG/M2, BID, ORAL
     Route: 048
     Dates: start: 20051027
  6. ATENOLOL [Concomitant]
  7. POTASSIUM CHLORIDE [Concomitant]
  8. ACETAMINOPHEN [Concomitant]

REACTIONS (7)
  - ABDOMINAL DISTENSION [None]
  - ABDOMINAL PAIN UPPER [None]
  - BLOOD POTASSIUM DECREASED [None]
  - CONSTIPATION [None]
  - FEBRILE NEUTROPENIA [None]
  - INTESTINAL OBSTRUCTION [None]
  - ORAL CANDIDIASIS [None]
